FAERS Safety Report 21667589 (Version 1)
Quarter: 2022Q4

REPORT INFORMATION
  Report Type: Spontaneous
  Country: US (occurrence: US)
  Receive Date: 20221201
  Receipt Date: 20221201
  Transmission Date: 20230113
  Serious: No
  Sender: FDA-Public Use
  Company Number: US-PFIZER INC-PV202200113211

PATIENT
  Age: 71 Year
  Sex: Male
  Weight: 113.4 kg

DRUGS (5)
  1. TOVIAZ [Suspect]
     Active Substance: FESOTERODINE FUMARATE
     Indication: Pollakiuria
     Dosage: 4 MG, DAILY (TAKE 1 TABLET (4 MG) ORAL DAILY)
     Route: 048
     Dates: start: 20210209
  2. TOVIAZ [Suspect]
     Active Substance: FESOTERODINE FUMARATE
     Indication: Micturition urgency
     Dosage: 8 MG, DAILY (TAKE 1 TABLET (8 MG) ORAL DAILY)
     Route: 048
     Dates: start: 20220706
  3. TOVIAZ [Suspect]
     Active Substance: FESOTERODINE FUMARATE
     Indication: Benign prostatic hyperplasia
  4. TOVIAZ [Suspect]
     Active Substance: FESOTERODINE FUMARATE
     Indication: Urinary tract obstruction
  5. TOVIAZ [Suspect]
     Active Substance: FESOTERODINE FUMARATE
     Indication: Nocturia

REACTIONS (5)
  - Drug ineffective [Not Recovered/Not Resolved]
  - Burning sensation [Unknown]
  - Fall [Unknown]
  - Musculoskeletal injury [Unknown]
  - Pollakiuria [Unknown]

NARRATIVE: CASE EVENT DATE: 20210429
